FAERS Safety Report 11494182 (Version 1)
Quarter: 2015Q3

REPORT INFORMATION
  Report Type: Spontaneous
  Country: US (occurrence: US)
  Receive Date: 20150911
  Receipt Date: 20150911
  Transmission Date: 20151125
  Serious: No
  Sender: FDA-Public Use
  Company Number: US-ROCHE-778211

PATIENT
  Age: 53 Year
  Sex: Female
  Weight: 57.6 kg

DRUGS (5)
  1. RIBAVIRIN. [Suspect]
     Active Substance: RIBAVIRIN
     Indication: HEPATITIS C
     Dosage: TAKEN IN DIVIDED DOSES.
     Route: 048
  2. METOPROLOL [Concomitant]
     Active Substance: METOPROLOL
     Route: 048
  3. PEGASYS [Suspect]
     Active Substance: PEGINTERFERON ALFA-2A
     Indication: HEPATITIS C
     Dosage: DISCONTINUED.
     Route: 058
     Dates: start: 20110505, end: 20110522
  4. PAXIL [Concomitant]
     Active Substance: PAROXETINE HYDROCHLORIDE
     Route: 048
  5. PEGASYS [Suspect]
     Active Substance: PEGINTERFERON ALFA-2A
     Dosage: RESTARTED AT LOWERED DOSES.
     Route: 058

REACTIONS (8)
  - Oral mucosal blistering [Recovered/Resolved]
  - Breath odour [Unknown]
  - Alopecia [Unknown]
  - Noninfective gingivitis [Not Recovered/Not Resolved]
  - Chromaturia [Unknown]
  - Pyrexia [Unknown]
  - Dry mouth [Unknown]
  - Anaemia [Unknown]

NARRATIVE: CASE EVENT DATE: 20110505
